FAERS Safety Report 17114720 (Version 1)
Quarter: 2019Q4

REPORT INFORMATION
  Report Type: Spontaneous
  Country: CA (occurrence: CA)
  Receive Date: 20191205
  Receipt Date: 20191205
  Transmission Date: 20200122
  Serious: Yes (Life-Threatening)
  Sender: FDA-Public Use
  Company Number: CA-ROCHE-2485009

PATIENT
  Age: 45 Year
  Sex: Female

DRUGS (30)
  1. PROGRAF [Suspect]
     Active Substance: TACROLIMUS
     Route: 048
  2. CELLCEPT [Suspect]
     Active Substance: MYCOPHENOLATE MOFETIL\MYCOPHENOLATE MOFETIL HYDROCHLORIDE
     Indication: TRANSPLANT
     Route: 048
  3. ENBREL [Suspect]
     Active Substance: ETANERCEPT
     Route: 058
  4. PROGRAF [Suspect]
     Active Substance: TACROLIMUS
     Indication: TRANSPLANT
     Route: 048
  5. PROGRAF [Suspect]
     Active Substance: TACROLIMUS
     Route: 048
  6. PROGRAF [Suspect]
     Active Substance: TACROLIMUS
     Route: 048
  7. PROGRAF [Suspect]
     Active Substance: TACROLIMUS
     Route: 048
  8. SULFASALAZINE. [Suspect]
     Active Substance: SULFASALAZINE
     Indication: PRODUCT USED FOR UNKNOWN INDICATION
     Route: 065
  9. MYCOPHENOLATE MOFETIL. [Suspect]
     Active Substance: MYCOPHENOLATE MOFETIL
     Indication: TRANSPLANT
     Route: 048
  10. ENBREL [Suspect]
     Active Substance: ETANERCEPT
     Indication: PRODUCT USED FOR UNKNOWN INDICATION
     Route: 058
  11. ENBREL [Suspect]
     Active Substance: ETANERCEPT
     Route: 058
  12. TACROLIMUS. [Suspect]
     Active Substance: TACROLIMUS
     Route: 048
  13. DACLIZUMAB [Suspect]
     Active Substance: DACLIZUMAB
     Indication: PRODUCT USED FOR UNKNOWN INDICATION
     Route: 042
  14. ENBREL [Suspect]
     Active Substance: ETANERCEPT
     Route: 058
  15. PROGRAF [Suspect]
     Active Substance: TACROLIMUS
     Route: 048
  16. RAPAMUNE [Suspect]
     Active Substance: SIROLIMUS
     Indication: TRANSPLANT
     Route: 065
  17. MYCOPHENOLATE MOFETIL. [Suspect]
     Active Substance: MYCOPHENOLATE MOFETIL
     Route: 048
  18. NEORAL [Suspect]
     Active Substance: CYCLOSPORINE
     Indication: TRANSPLANT
     Route: 065
  19. PROGRAF [Suspect]
     Active Substance: TACROLIMUS
     Route: 048
  20. ENBREL [Suspect]
     Active Substance: ETANERCEPT
     Route: 048
  21. ENBREL [Suspect]
     Active Substance: ETANERCEPT
     Route: 058
  22. PROGRAF [Suspect]
     Active Substance: TACROLIMUS
     Route: 048
  23. TACROLIMUS. [Suspect]
     Active Substance: TACROLIMUS
     Indication: PRODUCT USED FOR UNKNOWN INDICATION
     Route: 048
  24. TACROLIMUS. [Suspect]
     Active Substance: TACROLIMUS
     Route: 048
  25. CELLCEPT [Suspect]
     Active Substance: MYCOPHENOLATE MOFETIL\MYCOPHENOLATE MOFETIL HYDROCHLORIDE
     Indication: PRODUCT USED FOR UNKNOWN INDICATION
     Route: 048
  26. MYCOPHENOLATE MOFETIL. [Suspect]
     Active Substance: MYCOPHENOLATE MOFETIL
     Route: 048
  27. ENBREL [Suspect]
     Active Substance: ETANERCEPT
     Route: 048
  28. REMICADE [Suspect]
     Active Substance: INFLIXIMAB
     Indication: PRODUCT USED FOR UNKNOWN INDICATION
     Route: 042
  29. TACROLIMUS. [Suspect]
     Active Substance: TACROLIMUS
     Route: 048
  30. DACLIZUMAB [Suspect]
     Active Substance: DACLIZUMAB
     Indication: TRANSPLANT
     Route: 042

REACTIONS (12)
  - Liver function test abnormal [Not Recovered/Not Resolved]
  - Pneumonia [Not Recovered/Not Resolved]
  - Rheumatoid arthritis [Not Recovered/Not Resolved]
  - Sleep disorder due to general medical condition, insomnia type [Not Recovered/Not Resolved]
  - Ovarian cyst [Not Recovered/Not Resolved]
  - Alopecia [Not Recovered/Not Resolved]
  - Acne [Not Recovered/Not Resolved]
  - Condition aggravated [Not Recovered/Not Resolved]
  - Overdose [Unknown]
  - Pain [Not Recovered/Not Resolved]
  - Transplant dysfunction [Not Recovered/Not Resolved]
  - Transplant rejection [Not Recovered/Not Resolved]
